FAERS Safety Report 19929951 (Version 1)
Quarter: 2021Q4

REPORT INFORMATION
  Report Type: Report from Study
  Country: None (occurrence: US)
  Receive Date: 20211007
  Receipt Date: 20211007
  Transmission Date: 20220303
  Serious: Yes (Other)
  Sender: FDA-Public Use
  Company Number: US-ABBVIE-21K-163-4105015-00

PATIENT
  Sex: Female

DRUGS (4)
  1. VENCLEXTA [Suspect]
     Active Substance: VENETOCLAX
     Indication: Product used for unknown indication
     Route: 048
  2. COVID-19 VACCINE [Concomitant]
     Indication: COVID-19 immunisation
     Route: 030
  3. COVID-19 VACCINE [Concomitant]
     Route: 030
  4. COVID-19 VACCINE [Concomitant]
     Dosage: BOOSTER DOSE
     Route: 030
     Dates: start: 2021, end: 2021

REACTIONS (3)
  - Neoplasm malignant [Unknown]
  - Intentional product misuse [Unknown]
  - Fatigue [Not Recovered/Not Resolved]

NARRATIVE: CASE EVENT DATE: 20210101
